FAERS Safety Report 20368868 (Version 4)
Quarter: 2022Q1

REPORT INFORMATION
  Report Type: Report from Study
  Country: US (occurrence: US)
  Receive Date: 20220124
  Receipt Date: 20220206
  Transmission Date: 20220423
  Serious: No
  Sender: FDA-Public Use
  Company Number: US-NOVARTISTESTPH-NVSC2022US013974

PATIENT
  Age: 54 Year
  Sex: Female

DRUGS (4)
  1. KESIMPTA [Suspect]
     Active Substance: OFATUMUMAB
     Indication: Product used for unknown indication
     Dosage: UNK UNK, UNKNOWN
     Route: 065
  2. KESIMPTA [Suspect]
     Active Substance: OFATUMUMAB
     Dosage: 1.2 ML, QW
     Route: 058
     Dates: start: 20220120
  3. KESIMPTA [Suspect]
     Active Substance: OFATUMUMAB
     Dosage: 20 MG, QW
     Route: 065
  4. KESIMPTA [Suspect]
     Active Substance: OFATUMUMAB
     Dosage: UNK
     Route: 065
     Dates: start: 20220202

REACTIONS (5)
  - Incorrect dose administered by device [Unknown]
  - Device malfunction [Unknown]
  - Accidental exposure to product [Unknown]
  - Injection site pain [Unknown]
  - Foot fracture [Unknown]

NARRATIVE: CASE EVENT DATE: 20220120
